FAERS Safety Report 8762217 (Version 1)
Quarter: 2012Q4

REPORT INFORMATION
  Report Type: 
  Country: BR (occurrence: BR)
  Receive Date: 20120830
  Receipt Date: 20120830
  Transmission Date: 20130627
  Serious: Yes (Other)
  Sender: FDA-Public Use
  Company Number: PHHY2012BR074198

PATIENT
  Sex: Female
  Weight: 80 kg

DRUGS (5)
  1. CATAFLAM [Suspect]
     Indication: RHEUMATOID ARTHRITIS
     Dosage: 1/4 or a half tablet only when she felt pain
     Dates: end: 201201
  2. METFORMIN [Concomitant]
     Dosage: 1 DF, QD
  3. SIMVASTATIN [Concomitant]
     Indication: BLOOD CHOLESTEROL
     Dosage: 3 DF, QW
  4. SIMVASTATIN [Concomitant]
     Dosage: 2 DF, QW
  5. SIMVASTATIN [Concomitant]
     Dosage: 1 DF, QW

REACTIONS (1)
  - Diverticulitis [Recovered/Resolved]
